FAERS Safety Report 5412770-4 (Version None)
Quarter: 2007Q3

REPORT INFORMATION
  Report Type: 
  Country: None (occurrence: None)
  Receive Date: 20070809
  Receipt Date: 20070724
  Transmission Date: 20080115
  Serious: Yes (Life-Threatening, Hospitalization)
  Sender: FDA-Public Use
  Company Number: 100#08#2007-02818

PATIENT
  Age: 66 Year
  Sex: Male

DRUGS (2)
  1. METHOTREXATE [Suspect]
     Indication: PSORIATIC ARTHROPATHY
     Dosage: 5MG/WEEK ORAL
     Route: 048
     Dates: start: 20051209
  2. FOLIC ACID(FOLIC ACID) (FOLIC ACID) [Concomitant]

REACTIONS (8)
  - DERMATITIS EXFOLIATIVE [None]
  - HEPATITIS VIRAL [None]
  - HEPATOMEGALY [None]
  - HEPATOTOXICITY [None]
  - MOUTH ULCERATION [None]
  - OESOPHAGEAL CANDIDIASIS [None]
  - PANCYTOPENIA [None]
  - STOMATITIS [None]
